FAERS Safety Report 8387966 (Version 2)
Quarter: 2012Q4

REPORT INFORMATION
  Report Type: 
  Country: DE (occurrence: DE)
  Receive Date: 20120203
  Receipt Date: 20121112
  Transmission Date: 20130627
  Serious: Yes (Other)
  Sender: FDA-Public Use
  Company Number: DE-BAYER-2012-003146

PATIENT
  Age: 37 Year
  Sex: Female
  Weight: 66.21 kg

DRUGS (2)
  1. QLAIRA [Suspect]
     Indication: CONTRACEPTION
     Dosage: UNK
     Route: 048
     Dates: start: 201006, end: 20111229
  2. THYRONAJOD [Concomitant]
     Indication: HYPOTHYROIDISM
     Dosage: 50 ?g, UNK

REACTIONS (3)
  - Pregnancy on oral contraceptive [Recovered/Resolved]
  - Imminent abortion [None]
  - Drug ineffective [None]
